FAERS Safety Report 6375374-5 (Version None)
Quarter: 2009Q3

REPORT INFORMATION
  Report Type: 
  Country: None (occurrence: None)
  Receive Date: 20090924
  Receipt Date: 20090921
  Transmission Date: 20100115
  Serious: Yes (Life-Threatening, Hospitalization, Other)
  Sender: FDA-Public Use
  Company Number: PHHY2009DE40554

PATIENT
  Sex: Male

DRUGS (4)
  1. LEPONEX [Suspect]
     Indication: SCHIZOPHRENIA
     Dosage: 500 MG DAILY
     Route: 048
     Dates: end: 20090910
  2. LEPONEX [Suspect]
     Dosage: 500 MG DAILY
     Route: 048
     Dates: start: 20090917, end: 20090921
  3. LEPONEX [Suspect]
     Dosage: 250 MG DAILY
     Route: 048
     Dates: start: 20090921
  4. HEPARIN [Concomitant]
     Dosage: 100

REACTIONS (7)
  - FRACTURE [None]
  - HAEMOGLOBIN DECREASED [None]
  - LETHARGY [None]
  - PNEUMONIA [None]
  - RED BLOOD CELL COUNT DECREASED [None]
  - SURGERY [None]
  - UNRESPONSIVE TO STIMULI [None]
